FAERS Safety Report 4490211-1 (Version None)
Quarter: 2004Q4

REPORT INFORMATION
  Report Type: 
  Country: None (occurrence: None)
  Receive Date: 20041027
  Receipt Date: 20041014
  Transmission Date: 20050328
  Serious: Yes (Hospitalization, Other)
  Sender: FDA-Public Use
  Company Number: 2004079148

PATIENT
  Age: 65 Year
  Sex: Male
  Weight: 62 kg

DRUGS (4)
  1. HYDROXYZINE HCL [Suspect]
     Indication: ANGIOPATHY
     Dosage: 25 MG (25 MG, 1 IN 1 D), INTRAVENOUS
     Route: 042
  2. DROPERIDOL [Suspect]
     Indication: ANGIOPATHY
     Dosage: 5 MG (5 MG, 1 IN 1 D), INTRAVENOUS
     Route: 042
  3. THIOPENTAL SODIUM [Suspect]
     Indication: ANAESTHESIA
     Dosage: EPIDURAL
     Route: 008
  4. VECURONIUM [Suspect]
     Indication: ANAESTHESIA
     Dosage: EPIDURAL
     Route: 008

REACTIONS (8)
  - ACIDOSIS [None]
  - ANAESTHETIC COMPLICATION [None]
  - BLOOD PRESSURE INCREASED [None]
  - BODY TEMPERATURE INCREASED [None]
  - CHILLS [None]
  - FEELING COLD [None]
  - HEART RATE INCREASED [None]
  - SEDATION [None]
